FAERS Safety Report 16121549 (Version 1)
Quarter: 2019Q1

REPORT INFORMATION
  Report Type: Spontaneous
  Country: FR (occurrence: FR)
  Receive Date: 20190327
  Receipt Date: 20190327
  Transmission Date: 20190418
  Serious: Yes (Other)
  Sender: FDA-Public Use
  Company Number: FR-BRISTOL-MYERS SQUIBB COMPANY-BMS-2019-028811

PATIENT
  Age: 85 Year
  Sex: Female
  Weight: 49 kg

DRUGS (10)
  1. INFLUVAC TETRA [Concomitant]
     Active Substance: INFLUENZA VIRUS VACCINE QUADRIVALENT TYPE A+B
     Indication: ANTIVIRAL PROPHYLAXIS
     Dosage: 1 DOSAGE FORM, DRUG INTERVAL:1 DAY
     Route: 065
     Dates: start: 20181114, end: 20181114
  2. GALVUS [Concomitant]
     Active Substance: VILDAGLIPTIN
     Indication: DIABETES MELLITUS
     Dosage: 1 DOSAGE FORM, DRUG INTERVAL:1 DAY
     Route: 048
  3. PARACETAMOL [Concomitant]
     Active Substance: ACETAMINOPHEN
     Indication: PAIN
     Dosage: 1500 MILLIGRAM, DRUG INTERVAL:1 DAY
     Route: 048
  4. NOVOMIX [Concomitant]
     Active Substance: INSULIN ASPART
     Indication: DIABETES MELLITUS
     Route: 058
  5. IMOVANE [Concomitant]
     Active Substance: ZOPICLONE
     Indication: INSOMNIA
     Dosage: UNK
     Route: 048
  6. SERESTA [Concomitant]
     Active Substance: OXAZEPAM
     Indication: PRODUCT USED FOR UNKNOWN INDICATION
     Dosage: 2 DOSAGE FORM, DRUG INTERVAL:1 DAY
     Route: 048
  7. NOVORAPID [Concomitant]
     Active Substance: INSULIN ASPART
     Indication: DIABETES MELLITUS
     Dosage: UNK
     Route: 058
  8. ARANESP [Concomitant]
     Active Substance: DARBEPOETIN ALFA
     Indication: ANAEMIA
     Route: 065
  9. ELIQUIS [Suspect]
     Active Substance: APIXABAN
     Indication: CEREBROVASCULAR ACCIDENT PROPHYLAXIS
     Dosage: 2 DOSAGE FORM, DRUG INTERVAL:1 DAY
     Route: 048
     Dates: end: 20181126
  10. MIANSERINE                         /00390601/ [Concomitant]
     Active Substance: MIANSERIN
     Indication: DEPRESSION
     Dosage: 30 MILLIGRAM, DRUG INTERVAL:1 DAY
     Route: 048

REACTIONS (3)
  - Thrombocytopenia [Recovering/Resolving]
  - Cholestasis [Recovering/Resolving]
  - Hepatocellular injury [Recovered/Resolved]

NARRATIVE: CASE EVENT DATE: 20181125
